FAERS Safety Report 10022149 (Version 1)
Quarter: 2014Q1

REPORT INFORMATION
  Report Type: Spontaneous
  Country: US (occurrence: US)
  Receive Date: 20140319
  Receipt Date: 20140319
  Transmission Date: 20141002
  Serious: Yes (Other)
  Sender: FDA-Public Use
  Company Number: US-GLAXOSMITHKLINE-A1065629A

PATIENT
  Sex: Female

DRUGS (7)
  1. GABAPENTIN [Suspect]
     Indication: PERIODIC LIMB MOVEMENT DISORDER
     Route: 065
  2. PRAMIPEXOLE [Suspect]
     Indication: PERIODIC LIMB MOVEMENT DISORDER
     Route: 065
  3. NEUPRO [Suspect]
     Indication: PERIODIC LIMB MOVEMENT DISORDER
     Route: 062
  4. ROPINIROLE [Suspect]
     Indication: PERIODIC LIMB MOVEMENT DISORDER
     Dosage: 2.5MG AT NIGHT
     Route: 065
  5. HERBAL SUPPLEMENT [Suspect]
     Indication: SLEEP APNOEA SYNDROME
     Route: 065
  6. CPAP [Suspect]
     Indication: SLEEP APNOEA SYNDROME
     Route: 065
  7. UNKNOWN DEVICE [Suspect]
     Indication: SLEEP APNOEA SYNDROME
     Route: 065

REACTIONS (9)
  - Uvulopalatopharyngoplasty [Unknown]
  - Tonsillectomy [Unknown]
  - Malaise [Not Recovered/Not Resolved]
  - Drug ineffective [Unknown]
  - Anxiety [Unknown]
  - Weight increased [Not Recovered/Not Resolved]
  - Fatigue [Not Recovered/Not Resolved]
  - Nasopharyngitis [Unknown]
  - Pain [Unknown]
